FAERS Safety Report 10009012 (Version 2)
Quarter: 2014Q1

REPORT INFORMATION
  Report Type: Spontaneous
  Country: US (occurrence: US)
  Receive Date: 20140313
  Receipt Date: 20140313
  Transmission Date: 20141002
  Serious: No
  Sender: FDA-Public Use
  Company Number: US-INCYTE CORPORATION-2012IN000888

PATIENT
  Age: 71 Year
  Sex: Male

DRUGS (7)
  1. JAKAFI [Suspect]
     Dosage: 20 MG, BID
     Route: 048
  2. LIPITOR [Concomitant]
     Dosage: 20 MG, UNK
  3. FEXOFENADINE [Concomitant]
     Dosage: 60 MG, UNK
  4. HYDROXYZINE HYDROCHLORIDE [Concomitant]
     Dosage: 25 MG, UNK
  5. HYDROCODONE W/APAP [Concomitant]
     Dosage: 7.5/325
  6. MICARDIS [Concomitant]
     Dosage: 20 MG, UNK
  7. ASPIRIN [Concomitant]
     Dosage: 81 MG, UNK

REACTIONS (4)
  - Pruritus [Unknown]
  - Red blood cell count decreased [Unknown]
  - Haemoglobin decreased [Unknown]
  - Haematocrit decreased [Unknown]
